FAERS Safety Report 8868557 (Version 4)
Quarter: 2013Q1

REPORT INFORMATION
  Report Type: Spontaneous
  Country: US (occurrence: US)
  Receive Date: 20121024
  Receipt Date: 20130327
  Transmission Date: 20140127
  Serious: Yes (Death, Hospitalization, Other)
  Sender: FDA-Public Use
  Company Number: US-ELI_LILLY_AND_COMPANY-US201110000556

PATIENT
  Age: 70 Year
  Sex: Male
  Weight: 50.79 kg

DRUGS (10)
  1. FORTEO [Suspect]
     Indication: OSTEOPOROSIS
     Dosage: 20 UG, QD
     Route: 058
  2. FORTEO [Suspect]
     Dosage: 20 UG, QD
     Route: 058
  3. ATORVASTATIN [Concomitant]
     Dosage: 20 MG, UNKNOWN
  4. LORTAB [Concomitant]
     Dosage: 10/500 MG
  5. HYDRALAZINE [Concomitant]
     Dosage: 25 MG, UNKNOWN
  6. PLAVIX [Concomitant]
     Dosage: 75 MG, UNKNOWN
  7. TRAMADOL [Concomitant]
     Dosage: 50 MG, UNKNOWN
  8. PANTOPRAZOLE [Concomitant]
     Dosage: 40 MG, UNKNOWN
  9. METOPROLOL TARTRATE [Concomitant]
     Dosage: 25 MG, UNKNOWN
  10. MEGESTROL [Concomitant]
     Dosage: 40 MG, UNKNOWN

REACTIONS (6)
  - Death [Fatal]
  - Hip fracture [Recovering/Resolving]
  - Fall [Recovering/Resolving]
  - Cerebrovascular accident [Unknown]
  - Somnolence [Unknown]
  - Injection site bruising [Unknown]
